FAERS Safety Report 7332828-2 (Version None)
Quarter: 2011Q1

REPORT INFORMATION
  Report Type: 
  Country: None (occurrence: None)
  Receive Date: 20110304
  Receipt Date: 20110301
  Transmission Date: 20110831
  Serious: Yes (Other)
  Sender: FDA-Public Use
  Company Number: US-MERCK-1103USA00133

PATIENT
  Sex: Male

DRUGS (2)
  1. METAMUCIL-2 [Suspect]
     Route: 048
  2. ZOCOR [Suspect]
     Route: 048

REACTIONS (1)
  - RENAL FAILURE [None]
